FAERS Safety Report 17305469 (Version 1)
Quarter: 2020Q1

REPORT INFORMATION
  Report Type: Spontaneous
  Country: GB (occurrence: GB)
  Receive Date: 20200123
  Receipt Date: 20200123
  Transmission Date: 20200409
  Serious: Yes (Hospitalization, Other)
  Sender: FDA-Public Use
  Company Number: GB-PFIZER INC-2020024248

PATIENT
  Age: 69 Year
  Sex: Female

DRUGS (15)
  1. DULAGLUTIDE. [Suspect]
     Active Substance: DULAGLUTIDE
     Dosage: UNK
     Dates: end: 201912
  2. FUROSEMIDE. [Suspect]
     Active Substance: FUROSEMIDE
     Dosage: UNK
     Dates: end: 201912
  3. METFORMIN [Suspect]
     Active Substance: METFORMIN HYDROCHLORIDE
     Dosage: UNK
     Dates: end: 201912
  4. DEPAKOTE [Suspect]
     Active Substance: DIVALPROEX SODIUM
     Dosage: 500 MG, 1X/DAY
     Dates: end: 201912
  5. FYBOGEL [Suspect]
     Active Substance: PLANTAGO OVATA SEED
     Dosage: UNK
     Dates: end: 201912
  6. CLOZARIL [Suspect]
     Active Substance: CLOZAPINE
     Dosage: 200 MG, 1X/DAY (PM)
     Route: 048
     Dates: start: 20030925, end: 20191202
  7. ARIPIPRAZOLE. [Suspect]
     Active Substance: ARIPIPRAZOLE
     Dosage: 15 MG, 1X/DAY
     Dates: end: 201912
  8. ATORVASTATIN CALCIUM. [Suspect]
     Active Substance: ATORVASTATIN CALCIUM
     Dosage: UNK
     Dates: end: 201912
  9. PARACETAMOL [Suspect]
     Active Substance: ACETAMINOPHEN
     Dosage: UNK
     Dates: end: 201912
  10. GLICLAZIDE [Suspect]
     Active Substance: GLICLAZIDE
     Dosage: UNK
     Dates: end: 201912
  11. DULOXETINE. [Suspect]
     Active Substance: DULOXETINE
     Dosage: 60 MG, 2X/DAY
     Dates: end: 201912
  12. EPIMAX [Suspect]
     Active Substance: MINERAL OIL\PARAFFIN
     Dosage: UNK, AS NEEDED
     Dates: end: 201912
  13. SENNA ALEXANDRINA [Suspect]
     Active Substance: SENNA LEAF
     Dosage: UNK, AS NEEDED
     Dates: end: 201912
  14. ANORO ELLIPTA [Suspect]
     Active Substance: UMECLIDINIUM BROMIDE\VILANTEROL TRIFENATATE
     Dosage: UNK
     Dates: end: 201912
  15. CLOZARIL [Suspect]
     Active Substance: CLOZAPINE
     Indication: SCHIZOPHRENIA
     Dosage: 75 MG, 1X/DAY (AM)
     Route: 048
     Dates: start: 20030925, end: 20191202

REACTIONS (2)
  - Abdominal adhesions [Recovered/Resolved]
  - Small intestinal obstruction [Recovered/Resolved]

NARRATIVE: CASE EVENT DATE: 20191201
